FAERS Safety Report 7197730-8 (Version None)
Quarter: 2010Q4

REPORT INFORMATION
  Report Type: 
  Country: None (occurrence: None)
  Receive Date: 20101208
  Receipt Date: 20101201
  Transmission Date: 20110411
  Serious: Yes (Hospitalization)
  Sender: FDA-Public Use
  Company Number: 2009247088

PATIENT
  Age: 42 Year
  Sex: Female
  Weight: 87 kg

DRUGS (6)
  1. FRAGMIN [Suspect]
     Indication: DEEP VEIN THROMBOSIS
     Dosage: SEE IMAGE
     Route: 050
  2. FRAGMIN [Suspect]
     Indication: EMBOLISM ARTERIAL
     Dosage: SEE IMAGE
     Route: 050
  3. CITALOPRAM (CITALOPRAM) [Suspect]
     Dosage: ORAL, 10 MG, 1X/DAY, ORAL,
     Route: 048
  4. LAMOTRIGINE [Suspect]
     Dosage: , ORAL
     Route: 048
  5. PROMETHAZINE [Suspect]
     Dosage: 625 MG, SINGLE, ORAL, 625 MG, ORAL
     Route: 046
  6. ASPIRIN [Suspect]
     Dosage: ORAL, 75 MG, 1X/DAY
     Route: 048

REACTIONS (8)
  - ACTIVATED PARTIAL THROMBOPLASTIN TIME PROLONGED [None]
  - HAEMOGLOBIN DECREASED [None]
  - INJECTION SITE HAEMORRHAGE [None]
  - MULTIPLE DRUG OVERDOSE INTENTIONAL [None]
  - NEEDLE TRACK MARKS [None]
  - POISONING DELIBERATE [None]
  - SOMNOLENCE [None]
  - SUICIDE ATTEMPT [None]
